FAERS Safety Report 7858786-X (Version None)
Quarter: 2011Q4

REPORT INFORMATION
  Report Type: 
  Country: None (occurrence: None)
  Receive Date: 20111027
  Receipt Date: 20111018
  Transmission Date: 20120403
  Serious: Yes (Other)
  Sender: FDA-Public Use
  Company Number: US-JNJFOC-20110703178

PATIENT
  Sex: Male
  Weight: 76 kg

DRUGS (14)
  1. ECONAZOLE NITRATE [Concomitant]
     Indication: FUNGAL SKIN INFECTION
     Route: 061
  2. DOCUSATE SODIUM [Concomitant]
     Route: 048
  3. METOPROLOL TARTRATE [Concomitant]
     Indication: BLOOD PRESSURE
     Route: 048
  4. FUROSEMIDE [Concomitant]
     Route: 048
  5. PREDNISONE [Concomitant]
     Indication: INFLAMMATION
     Route: 048
  6. METOPROLOL TARTRATE [Concomitant]
     Indication: CARDIAC DISORDER
     Route: 048
  7. OMEPRAZOLE [Concomitant]
     Indication: HYPERCHLORHYDRIA
     Route: 048
  8. SIMVASTATIN [Concomitant]
     Indication: BLOOD CHOLESTEROL
     Route: 048
  9. ZYTIGA [Suspect]
     Indication: PROSTATE CANCER METASTATIC
     Route: 048
     Dates: start: 20110607, end: 20110803
  10. CYANOCOBALAMIN [Concomitant]
     Indication: VITAMIN B12 DEFICIENCY
     Route: 030
  11. ASPIRIN [Concomitant]
     Indication: CARDIAC DISORDER
     Route: 048
  12. FENTANYL-100 [Concomitant]
     Route: 062
  13. LOPERAMIDE HCL [Concomitant]
     Indication: DIARRHOEA
     Dosage: TO START WITH
     Route: 048
  14. LOPERAMIDE HCL [Concomitant]
     Dosage: AS REQUIRED
     Route: 048

REACTIONS (2)
  - OEDEMA PERIPHERAL [None]
  - PLEURAL EFFUSION [None]
